FAERS Safety Report 10253434 (Version 2)
Quarter: 2014Q4

REPORT INFORMATION
  Report Type: Spontaneous
  Country: AU (occurrence: AU)
  Receive Date: 20140623
  Receipt Date: 20141105
  Transmission Date: 20150528
  Serious: Yes (Life-Threatening, Hospitalization)
  Sender: FDA-Public Use
  Company Number: AU-B.I. PHARMACEUTICALS,INC./RIDGEFIELD-2014-BI-27848AU

PATIENT
  Age: 50 Year
  Sex: Female

DRUGS (1)
  1. TRAJENTAMET [Suspect]
     Active Substance: LINAGLIPTIN\METFORMIN HYDROCHLORIDE
     Indication: DIABETES MELLITUS
     Dosage: DOSE PER APPLICATION AND DAILY DOSE: 2.5/1000 MG;
     Route: 065
     Dates: start: 20140414, end: 20140606

REACTIONS (6)
  - Nausea [Recovered/Resolved]
  - Abdominal pain upper [Recovered/Resolved]
  - Hepatitis [Recovered/Resolved]
  - Pancreatic carcinoma [Not Recovered/Not Resolved]
  - Pancreatitis [Recovered/Resolved]
  - Hypertriglyceridaemia [Unknown]

NARRATIVE: CASE EVENT DATE: 20140528
